FAERS Safety Report 9077550 (Version 1)
Quarter: 2013Q1

REPORT INFORMATION
  Report Type: Spontaneous
  Country: BR (occurrence: BR)
  Receive Date: 20130130
  Receipt Date: 20130130
  Transmission Date: 20140127
  Serious: Yes (Other)
  Sender: FDA-Public Use
  Company Number: PHHY2012BR097347

PATIENT
  Age: 14 Year
  Sex: Male
  Weight: 50 kg

DRUGS (1)
  1. RITALIN LA [Suspect]
     Indication: ATTENTION DEFICIT/HYPERACTIVITY DISORDER
     Dosage: 1 DF, BID

REACTIONS (4)
  - Presyncope [Recovering/Resolving]
  - Blood pressure decreased [Recovered/Resolved]
  - Hypersensitivity [Recovering/Resolving]
  - Rash generalised [Recovering/Resolving]
